FAERS Safety Report 6723881-5 (Version None)
Quarter: 2010Q2

REPORT INFORMATION
  Report Type: 
  Country: None (occurrence: None)
  Receive Date: 20100513
  Receipt Date: 20100503
  Transmission Date: 20101027
  Serious: Yes (Disabling)
  Sender: FDA-Public Use
  Company Number: US-WYE-H14367110

PATIENT
  Sex: Female

DRUGS (2)
  1. RELISTOR [Suspect]
     Indication: CONSTIPATION
     Dosage: 12 MG EVERY 1 TOT
     Route: 058
     Dates: start: 20100318, end: 20100318
  2. OXYCONTIN [Concomitant]
     Indication: PAIN
     Route: 048

REACTIONS (1)
  - VOMITING [None]
